FAERS Safety Report 4589450-0 (Version None)
Quarter: 2005Q1

REPORT INFORMATION
  Report Type: 
  Country: None (occurrence: None)
  Receive Date: 20050216
  Receipt Date: 20041213
  Transmission Date: 20050727
  Serious: Yes (Death, Other)
  Sender: FDA-Public Use
  Company Number: JP_050205825

PATIENT
  Age: 70 Year
  Sex: Male
  Weight: 63 kg

DRUGS (13)
  1. VINBLASTINE SULFATE [Suspect]
     Indication: BLADDER CANCER
     Dosage: 2 MG OTHER
     Route: 050
     Dates: start: 20041203, end: 20041203
  2. METHOTREXATE [Concomitant]
  3. RANDA (CISPLATIN PHARMACIA) [Concomitant]
  4. ADRIACIN (DOXORUBICIN HYDROCHLORIDE) [Concomitant]
  5. ZYLORIC /SCH/ (ALLOPURINOL RHONE-POULENC) [Concomitant]
  6. DIOVAN [Concomitant]
  7. DOXAZOSIN MESYLATE [Concomitant]
  8. HERBESSER ^TANABE^ (DILTIAZEM HYDROCHLORIDE) [Concomitant]
  9. GLUCOBAY [Concomitant]
  10. ASPIRIN [Concomitant]
  11. NOVAMIN (PROCHLORPERAZINE) [Concomitant]
  12. FAMOTIDINE [Concomitant]
  13. KYTRIL [Concomitant]

REACTIONS (18)
  - ALANINE AMINOTRANSFERASE INCREASED [None]
  - ASPARTATE AMINOTRANSFERASE INCREASED [None]
  - BLOOD ALBUMIN DECREASED [None]
  - BLOOD POTASSIUM INCREASED [None]
  - BLOOD PRESSURE DECREASED [None]
  - BODY TEMPERATURE INCREASED [None]
  - CARDIAC ARREST [None]
  - CYANOSIS [None]
  - DEPRESSED LEVEL OF CONSCIOUSNESS [None]
  - DRUG TOXICITY [None]
  - DYSPNOEA [None]
  - HAEMODIALYSIS [None]
  - ILEUS PARALYTIC [None]
  - PLATELET COUNT DECREASED [None]
  - PROTEIN TOTAL DECREASED [None]
  - RENAL IMPAIRMENT [None]
  - URINE OUTPUT DECREASED [None]
  - WHITE BLOOD CELL COUNT DECREASED [None]
